FAERS Safety Report 7090000-8 (Version None)
Quarter: 2010Q4

REPORT INFORMATION
  Report Type: 
  Country: None (occurrence: None)
  Receive Date: 20101109
  Receipt Date: 20101104
  Transmission Date: 20110411
  Serious: Yes (Hospitalization)
  Sender: FDA-Public Use
  Company Number: 2008BI003402

PATIENT
  Age: 31 Year
  Sex: Female

DRUGS (2)
  1. TYSABRI [Suspect]
     Indication: RELAPSING-REMITTING MULTIPLE SCLEROSIS
     Route: 042
     Dates: start: 20071107, end: 20080206
  2. TYSABRI [Suspect]
     Route: 042
     Dates: start: 20080724, end: 20101028

REACTIONS (11)
  - ALLERGY TO METALS [None]
  - ANAPHYLACTIC SHOCK [None]
  - ANGIOEDEMA [None]
  - DIZZINESS [None]
  - FOOD ALLERGY [None]
  - LYMPHOCYTOSIS [None]
  - MULTIPLE SCLEROSIS RELAPSE [None]
  - NAUSEA [None]
  - POLYDIPSIA [None]
  - PYREXIA [None]
  - URTICARIA CHRONIC [None]
